FAERS Safety Report 9700758 (Version 3)
Quarter: 2014Q1

REPORT INFORMATION
  Report Type: Spontaneous
  Country: US (occurrence: US)
  Receive Date: 20131121
  Receipt Date: 20140121
  Transmission Date: 20141002
  Serious: No
  Sender: FDA-Public Use
  Company Number: US-PFIZER INC-2013330232

PATIENT
  Age: 58 Year
  Sex: Female

DRUGS (5)
  1. PREMPRO [Suspect]
     Indication: MENOPAUSAL SYMPTOMS
     Dosage: 0.625 / 2.5MG, 1X/DAY
     Route: 048
  2. PREMPRO [Suspect]
     Indication: HOT FLUSH
     Dosage: 0.625 / 0.22, UNK
     Route: 048
     Dates: end: 201106
  3. PREMPRO [Suspect]
     Indication: OSTEOPOROSIS PROPHYLAXIS
     Dosage: 0.03 / 1.5
     Route: 048
  4. AMLODIPINE BESILATE/BENAZEPRIL HYDROCHLORIDE [Concomitant]
     Dosage: 5 - 10 MG
  5. LEXAPRO [Concomitant]
     Dosage: UNK

REACTIONS (2)
  - Memory impairment [Unknown]
  - Insomnia [Unknown]
